FAERS Safety Report 8094975-X (Version None)
Quarter: 2012Q1

REPORT INFORMATION
  Report Type: 
  Country: None (occurrence: None)
  Receive Date: 20120131
  Receipt Date: 20120118
  Transmission Date: 20120608
  Serious: No
  Sender: FDA-Public Use
  Company Number: US-ABBOTT-12P-163-0895416-00

PATIENT
  Sex: Female
  Weight: 61.29 kg

DRUGS (1)
  1. CREON [Suspect]
     Indication: PANCREATIC INSUFFICIENCY
     Dates: start: 20110501

REACTIONS (3)
  - ABDOMINAL PAIN [None]
  - HEADACHE [None]
  - ULCER [None]
